FAERS Safety Report 8319623-2 (Version None)
Quarter: 2012Q2

REPORT INFORMATION
  Report Type: 
  Country: None (occurrence: None)
  Receive Date: 20120427
  Receipt Date: 20120416
  Transmission Date: 20120825
  Serious: Yes (Other)
  Sender: FDA-Public Use
  Company Number: PHEH2012US008191

PATIENT
  Sex: Female

DRUGS (1)
  1. NEORAL [Suspect]
     Indication: NEPHRITIS
     Dosage: 125 MG, BID
     Route: 048
     Dates: start: 20110301

REACTIONS (1)
  - NEPHROPATHY TOXIC [None]
